FAERS Safety Report 24751041 (Version 1)
Quarter: 2024Q4

REPORT INFORMATION
  Report Type: Spontaneous
  Country: GB (occurrence: GB)
  Receive Date: 20241219
  Receipt Date: 20241219
  Transmission Date: 20250114
  Serious: Yes (Other)
  Sender: GLAXOSMITHKLINE
  Company Number: None

PATIENT

DRUGS (3)
  1. LAMOTRIGINE [Suspect]
     Active Substance: LAMOTRIGINE
     Indication: Affective disorder
     Dosage: 50 MG, BID
     Route: 065
     Dates: start: 20241112
  2. LAMOTRIGINE [Suspect]
     Active Substance: LAMOTRIGINE
     Dosage: 75 MG, BID (DOSE INCREASED)
     Route: 065
     Dates: end: 20241207
  3. DULOXETINE [Concomitant]
     Active Substance: DULOXETINE
     Indication: Antidepressant therapy
     Dosage: 30 MG, BID
     Route: 065
     Dates: start: 20241112, end: 20241207

REACTIONS (5)
  - Incorrect dose administered [Unknown]
  - Exposure via breast milk [Unknown]
  - Rash [Recovering/Resolving]
  - Rash maculo-papular [Unknown]
  - Rash pruritic [Unknown]

NARRATIVE: CASE EVENT DATE: 20241203
